FAERS Safety Report 10809608 (Version 1)
Quarter: 2015Q1

REPORT INFORMATION
  Report Type: Spontaneous
  Country: US (occurrence: None)
  Receive Date: 20150213
  Receipt Date: 20150213
  Transmission Date: 20150721
  Serious: Yes (Disabling)
  Sender: FDA-Public Use
  Company Number: None

PATIENT
  Age: 61 Year
  Sex: Male
  Weight: 125.65 kg

DRUGS (13)
  1. ASPIRIN. [Concomitant]
     Active Substance: ASPIRIN
  2. VICTOZA [Concomitant]
     Active Substance: LIRAGLUTIDE
  3. FLONASE [Concomitant]
     Active Substance: FLUTICASONE PROPIONATE
  4. AMOXICILLIN. [Concomitant]
     Active Substance: AMOXICILLIN
  5. PRAVASTATIN [Concomitant]
     Active Substance: PRAVASTATIN\PRAVASTATIN SODIUM
  6. LANTUS [Concomitant]
     Active Substance: INSULIN GLARGINE
  7. METFORMIN [Concomitant]
     Active Substance: METFORMIN HYDROCHLORIDE
  8. CENTRUM [Concomitant]
     Active Substance: VITAMINS
  9. CIPROFLOXACIN HCL 500 MG TAB BID WEST-WARD PHARMCEUTICAL [Suspect]
     Active Substance: CIPROFLOXACIN HYDROCHLORIDE
     Indication: GINGIVITIS
     Dosage: 500 MG 1 PILL TWICE DAILY BY MOUTH
     Route: 048
     Dates: start: 20141224, end: 20150106
  10. NEXIUM [Concomitant]
     Active Substance: ESOMEPRAZOLE MAGNESIUM
  11. CIPROFLOXCIN EYE DROPS [Suspect]
     Active Substance: CIPROFLOXACIN
  12. CIPROFLOXACIN HCL 500 MG TAB BID WEST-WARD PHARMCEUTICAL [Suspect]
     Active Substance: CIPROFLOXACIN HYDROCHLORIDE
     Dosage: 500 MG 1 PILL TWICE DAILY BY MOUTH
     Route: 048
     Dates: start: 20141224, end: 20150106
  13. LISINOPRIL. [Concomitant]
     Active Substance: LISINOPRIL

REACTIONS (4)
  - Musculoskeletal pain [None]
  - Pain in extremity [None]
  - Tendon pain [None]
  - Hypoaesthesia [None]

NARRATIVE: CASE EVENT DATE: 20141228
